FAERS Safety Report 9892045 (Version 1)
Quarter: 2014Q1

REPORT INFORMATION
  Report Type: Spontaneous
  Country: US (occurrence: US)
  Receive Date: 20140212
  Receipt Date: 20140212
  Transmission Date: 20141002
  Serious: Yes (Death, Other)
  Sender: FDA-Public Use
  Company Number: US-BAYER-2014-017079

PATIENT
  Age: 66 Year
  Sex: Female

DRUGS (1)
  1. CIPROFLOXACIN [Suspect]
     Indication: URINARY TRACT INFECTION

REACTIONS (4)
  - Tubulointerstitial nephritis [None]
  - Granulomatosis with polyangiitis [Fatal]
  - Renal haematoma [Fatal]
  - Retroperitoneal haemorrhage [Fatal]
